FAERS Safety Report 8559486-3 (Version None)
Quarter: 2012Q3

REPORT INFORMATION
  Report Type: 
  Country: None (occurrence: None)
  Receive Date: 20120802
  Receipt Date: 20120724
  Transmission Date: 20120928
  Serious: Yes (Other)
  Sender: FDA-Public Use
  Company Number: US-JNJFOC-20120705142

PATIENT
  Age: 82 Year
  Sex: Female
  Weight: 49.44 kg

DRUGS (3)
  1. AMLODIPINE BESYLATE [Concomitant]
     Indication: HYPERTENSION
     Route: 065
  2. OMEPRAZOLE [Concomitant]
     Indication: GASTROOESOPHAGEAL REFLUX DISEASE
     Route: 065
  3. NEUTROGENA T/GEL THERAPEUTIC SHAMPOO ORIGINAL [Suspect]
     Indication: PRODUCT USED FOR UNKNOWN INDICATION
     Dosage: ABOUT HALF A DOLLAR SIZE AMOUNT, ONCE ONLY
     Route: 061
     Dates: start: 20120701, end: 20120701

REACTIONS (2)
  - PRODUCT QUALITY ISSUE [None]
  - DIZZINESS [None]
